FAERS Safety Report 6668673-0 (Version None)
Quarter: 2010Q2

REPORT INFORMATION
  Report Type: 
  Country: None (occurrence: None)
  Receive Date: 20100406
  Receipt Date: 20100323
  Transmission Date: 20101027
  Serious: Yes (Other)
  Sender: FDA-Public Use
  Company Number: PHHY2010RU17556

PATIENT
  Age: 9 Year

DRUGS (1)
  1. FORADIL [Suspect]
     Indication: ASTHMA

REACTIONS (2)
  - COUGH [None]
  - LARYNGEAL OEDEMA [None]
